FAERS Safety Report 10854434 (Version 1)
Quarter: 2015Q1

REPORT INFORMATION
  Report Type: Spontaneous
  Country: US (occurrence: US)
  Receive Date: 20150223
  Receipt Date: 20150223
  Transmission Date: 20150721
  Serious: No
  Sender: FDA-Public Use
  Company Number: US-ASTRAZENECA-2015SE15081

PATIENT
  Sex: Female
  Weight: 61.7 kg

DRUGS (5)
  1. PROSOM [Concomitant]
     Active Substance: ESTAZOLAM
     Indication: SLEEP DISORDER
  2. UNSPECIFIED VITAMINS [Concomitant]
     Indication: SUPPLEMENTATION THERAPY
  3. PROLIA INJECTION [Concomitant]
     Indication: OSTEOPOROSIS
     Dosage: EVERY SIX MONTHS
     Route: 050
     Dates: start: 2012
  4. SYMBICORT [Suspect]
     Active Substance: BUDESONIDE\FORMOTEROL FUMARATE DIHYDRATE
     Indication: CHRONIC OBSTRUCTIVE PULMONARY DISEASE
     Dosage: 160/4.5 MCG; TWO PUFFS TWO TIMES A DAY
     Route: 055
     Dates: start: 20150113
  5. PROAIR HFA [Concomitant]
     Active Substance: ALBUTEROL SULFATE
     Indication: INHALATION THERAPY
     Dosage: AS REQUIRED
     Route: 055

REACTIONS (1)
  - Fatigue [Not Recovered/Not Resolved]
